FAERS Safety Report 6864304-5 (Version None)
Quarter: 2010Q3

REPORT INFORMATION
  Report Type: 
  Country: None (occurrence: None)
  Receive Date: 20100721
  Receipt Date: 20080320
  Transmission Date: 20110219
  Serious: No
  Sender: FDA-Public Use
  Company Number: US-PFIZER INC-2008026453

PATIENT
  Sex: Female
  Weight: 28.636 kg

DRUGS (3)
  1. CHANTIX [Suspect]
     Indication: SMOKING CESSATION THERAPY
     Dates: start: 20080301
  2. ANTIHYPERTENSIVES [Concomitant]
     Indication: HYPERTENSION
  3. IBANDRONATE SODIUM [Concomitant]
     Indication: OSTEOPOROSIS

REACTIONS (4)
  - ABDOMINAL DISCOMFORT [None]
  - NAUSEA [None]
  - POLLAKIURIA [None]
  - WEIGHT DECREASED [None]
